FAERS Safety Report 16847663 (Version 1)
Quarter: 2019Q3

REPORT INFORMATION
  Report Type: Spontaneous
  Country: US (occurrence: US)
  Receive Date: 20190924
  Receipt Date: 20190924
  Transmission Date: 20191005
  Serious: No
  Sender: FDA-Public Use
  Company Number: US-ACORDA-ACO_160822_2019

PATIENT
  Sex: Female
  Weight: 55.33 kg

DRUGS (1)
  1. INBRIJA [Suspect]
     Active Substance: LEVODOPA
     Indication: PARKINSON^S DISEASE
     Dosage: 42 MILLIGRAM (2 CAPSULES UP TO FIVE TIMES PER DAY AS NEEDED)
     Dates: start: 20190820

REACTIONS (6)
  - Abdominal discomfort [Unknown]
  - Cough [Unknown]
  - Drug ineffective [Unknown]
  - Oropharyngeal pain [Unknown]
  - Headache [Unknown]
  - Oropharyngeal discomfort [Unknown]
